FAERS Safety Report 7420280-8 (Version None)
Quarter: 2011Q2

REPORT INFORMATION
  Report Type: 
  Country: None (occurrence: None)
  Receive Date: 20110418
  Receipt Date: 20110405
  Transmission Date: 20111010
  Serious: Yes (Other)
  Sender: FDA-Public Use
  Company Number: PHHY2011AU18810

PATIENT
  Sex: Female

DRUGS (5)
  1. ACLASTA [Suspect]
     Dosage: UNK
     Dates: start: 20110219
  2. CALTRATE [Concomitant]
     Dosage: UNK
     Route: 048
  3. NEXIUM [Concomitant]
     Route: 048
  4. APROBIT [Concomitant]
     Dosage: UNK
     Route: 048
  5. MAGNESIUM [Concomitant]
     Dosage: UNK
     Route: 048

REACTIONS (15)
  - GAIT DISTURBANCE [None]
  - LETHARGY [None]
  - GASTROENTERITIS [None]
  - APHAGIA [None]
  - FAECAL INCONTINENCE [None]
  - ABDOMINAL DISCOMFORT [None]
  - SOMNOLENCE [None]
  - BALANCE DISORDER [None]
  - MOVEMENT DISORDER [None]
  - HEADACHE [None]
  - FATIGUE [None]
  - PARAESTHESIA [None]
  - URINARY INCONTINENCE [None]
  - DIARRHOEA [None]
  - VOMITING [None]
